FAERS Safety Report 18415349 (Version 1)
Quarter: 2020Q4

REPORT INFORMATION
  Report Type: Report from Study
  Country: US (occurrence: US)
  Receive Date: 20201022
  Receipt Date: 20201022
  Transmission Date: 20210114
  Serious: Yes (Hospitalization)
  Sender: FDA-Public Use
  Company Number: US-GLAXOSMITHKLINE-US2020AMR207988

PATIENT
  Sex: Male

DRUGS (1)
  1. BELANTAMAB MAFODOTIN. [Suspect]
     Active Substance: BELANTAMAB MAFODOTIN
     Indication: PRODUCT USED FOR UNKNOWN INDICATION
     Dosage: 80 MG
     Dates: start: 20201014

REACTIONS (5)
  - Hypertension [Unknown]
  - Tachycardia [Unknown]
  - Infusion related reaction [Unknown]
  - Dyspnoea [Unknown]
  - Throat tightness [Unknown]
